FAERS Safety Report 9016021 (Version 1)
Quarter: 2013Q1

REPORT INFORMATION
  Report Type: Spontaneous
  Country: US (occurrence: US)
  Receive Date: 20130116
  Receipt Date: 20130116
  Transmission Date: 20140127
  Serious: No
  Sender: FDA-Public Use
  Company Number: US-ASTRAZENECA-2012SE46225

PATIENT
  Age: 41 Year
  Sex: Male

DRUGS (1)
  1. NEXIUM [Suspect]
     Route: 048

REACTIONS (5)
  - Oesophageal disorder [Unknown]
  - Gastrooesophageal reflux disease [Unknown]
  - Tracheal disorder [Unknown]
  - Dysphagia [Unknown]
  - Drug dose omission [Unknown]
